FAERS Safety Report 15996266 (Version 1)
Quarter: 2019Q1

REPORT INFORMATION
  Report Type: Spontaneous
  Country: CA (occurrence: CA)
  Receive Date: 20190222
  Receipt Date: 20190222
  Transmission Date: 20190418
  Serious: Yes (Hospitalization)
  Sender: FDA-Public Use
  Company Number: CA-ACTELION-A-NJ2019-186518

PATIENT
  Age: 57 Year
  Sex: Female

DRUGS (13)
  1. SPIRONOLACTONE. [Concomitant]
     Active Substance: SPIRONOLACTONE
  2. SYNTHROID [Concomitant]
     Active Substance: LEVOTHYROXINE SODIUM
  3. OMNARIS [Concomitant]
     Active Substance: CICLESONIDE
  4. IRON [Concomitant]
     Active Substance: IRON
  5. OXYGEN. [Concomitant]
     Active Substance: OXYGEN
  6. VITAMIN C [Concomitant]
     Active Substance: ASCORBIC ACID
  7. CARIPUL [Suspect]
     Active Substance: EPOPROSTENOL
     Indication: PULMONARY ARTERIAL HYPERTENSION
     Dosage: UNK MG, UNK
     Route: 042
     Dates: start: 20140219
  8. REVATIO [Concomitant]
     Active Substance: SILDENAFIL CITRATE
  9. FUROSEMIDE. [Concomitant]
     Active Substance: FUROSEMIDE
  10. VITAMIN B12 [Concomitant]
     Active Substance: CYANOCOBALAMIN
  11. PANTOPRAZOLE [Concomitant]
     Active Substance: PANTOPRAZOLE
  12. DOMPERIDONE [Concomitant]
     Active Substance: DOMPERIDONE
  13. CALCIUM [Concomitant]
     Active Substance: CALCIUM

REACTIONS (1)
  - Influenza [Not Recovered/Not Resolved]
